FAERS Safety Report 18104378 (Version 1)
Quarter: 2020Q3

REPORT INFORMATION
  Report Type: Spontaneous
  Country: FR (occurrence: FR)
  Receive Date: 20200803
  Receipt Date: 20200803
  Transmission Date: 20201103
  Serious: Yes (Hospitalization)
  Sender: FDA-Public Use
  Company Number: FR-JNJFOC-20200736750

PATIENT
  Age: 6 Decade
  Sex: Female

DRUGS (2)
  1. HALDOL DECANOAS [Suspect]
     Active Substance: HALOPERIDOL DECANOATE
     Indication: PRODUCT USED FOR UNKNOWN INDICATION
  2. HALDOL [Suspect]
     Active Substance: HALOPERIDOL
     Indication: PRODUCT USED FOR UNKNOWN INDICATION
     Route: 048

REACTIONS (7)
  - Muscle fatigue [Unknown]
  - Salivary hypersecretion [Unknown]
  - Visual impairment [Unknown]
  - Restlessness [Unknown]
  - Decreased appetite [Unknown]
  - Dysphagia [Unknown]
  - Reduced facial expression [Unknown]
